FAERS Safety Report 4323702-4 (Version None)
Quarter: 2004Q1

REPORT INFORMATION
  Report Type: 
  Country: None (occurrence: None)
  Receive Date: 20040325
  Receipt Date: 20040325
  Transmission Date: 20041129
  Serious: Yes (Other)
  Sender: FDA-Public Use
  Company Number: None

PATIENT
  Age: 51 Year
  Sex: Female
  Weight: 65.7716 kg

DRUGS (2)
  1. PAXIL [Suspect]
     Indication: ANXIETY
     Dosage: 1 DAILY ORAL
     Route: 048
     Dates: start: 20010605, end: 20040109
  2. PAXIL [Suspect]
     Indication: DEPRESSION
     Dosage: 1 DAILY ORAL
     Route: 048
     Dates: start: 20010605, end: 20040109

REACTIONS (12)
  - ABNORMAL DREAMS [None]
  - DIARRHOEA [None]
  - DIZZINESS [None]
  - DRUG DEPENDENCE [None]
  - HYPERHIDROSIS [None]
  - HYPERSOMNIA [None]
  - INFLUENZA LIKE ILLNESS [None]
  - LETHARGY [None]
  - LYMPHADENOPATHY [None]
  - NERVOUS SYSTEM DISORDER [None]
  - PAIN [None]
  - PARAESTHESIA [None]
